FAERS Safety Report 7832955-7 (Version None)
Quarter: 2011Q4

REPORT INFORMATION
  Report Type: 
  Country: None (occurrence: None)
  Receive Date: 20111019
  Receipt Date: 20110912
  Transmission Date: 20120403
  Serious: No
  Sender: FDA-Public Use
  Company Number: NXG-11-005

PATIENT
  Sex: Female
  Weight: 74.8435 kg

DRUGS (1)
  1. POLYETHYLENE GLYCOL 3350 [Suspect]
     Indication: COLONOSCOPY
     Dosage: 17G/15 MIN UNTIL EMPTY

REACTIONS (2)
  - VOMITING PROJECTILE [None]
  - NAUSEA [None]
